FAERS Safety Report 5992948-1 (Version None)
Quarter: 2008Q4

REPORT INFORMATION
  Report Type: 
  Country: None (occurrence: None)
  Receive Date: 20081212
  Receipt Date: 20081201
  Transmission Date: 20090506
  Serious: Yes (Other)
  Sender: FDA-Public Use
  Company Number: HQWYE754301SEP04

PATIENT
  Sex: Female

DRUGS (1)
  1. PREMPRO [Suspect]
     Dosage: DAILY UNSPECIFIED DOSAGE
     Route: 048
     Dates: start: 19960101, end: 19990101

REACTIONS (1)
  - BREAST CANCER METASTATIC [None]
